FAERS Safety Report 10198994 (Version 2)
Quarter: 2017Q2

REPORT INFORMATION
  Report Type: Spontaneous
  Country: US (occurrence: US)
  Receive Date: 20140527
  Receipt Date: 20170602
  Transmission Date: 20170829
  Serious: No
  Sender: FDA-Public Use
  Company Number: US-NOVEN-13US007835

PATIENT

DRUGS (7)
  1. DAYTRANA [Suspect]
     Active Substance: METHYLPHENIDATE
     Indication: ATTENTION DEFICIT/HYPERACTIVITY DISORDER
     Dosage: 10 MG X2, QD
     Route: 062
     Dates: start: 201309
  2. DAYTRANA [Suspect]
     Active Substance: METHYLPHENIDATE
     Dosage: USING 3/4TH OF 10 MG PATCH, UNKNOWN
     Route: 062
  3. LORTAB [Concomitant]
     Active Substance: ACETAMINOPHEN\HYDROCODONE BITARTRATE
     Indication: ENDOMETRIOSIS
     Dosage: 1-2 DAYS IN A MONTH
  4. DAYTRANA [Suspect]
     Active Substance: METHYLPHENIDATE
     Dosage: CUTTING 10 MG PATCH INTO HALF, UNKNOWN
     Route: 062
  5. DAYTRANA [Suspect]
     Active Substance: METHYLPHENIDATE
     Dosage: 10 MG, UNKNOWN
  6. DAYTRANA [Suspect]
     Active Substance: METHYLPHENIDATE
     Dosage: USING 1/4TH OF 10 MG WITH ANOTHER 10 MG PATCH, UNKNOWN
  7. DAYTRANA [Suspect]
     Active Substance: METHYLPHENIDATE
     Dosage: USING 10 MG PATCH WITH ANOTHER HALF PATCH OF 10 MG, UNKNOWN

REACTIONS (5)
  - Off label use [Unknown]
  - Insomnia [Unknown]
  - Nervousness [Unknown]
  - Wrong technique in product usage process [Recovered/Resolved]
  - Headache [Recovered/Resolved]

NARRATIVE: CASE EVENT DATE: 201309
